FAERS Safety Report 5754238-1 (Version None)
Quarter: 2008Q2

REPORT INFORMATION
  Report Type: 
  Country: None (occurrence: None)
  Receive Date: 20080530
  Receipt Date: 20080520
  Transmission Date: 20081010
  Serious: Yes (Hospitalization)
  Sender: FDA-Public Use
  Company Number: FR-AMGEN-US281898

PATIENT
  Sex: Male

DRUGS (6)
  1. ENBREL [Suspect]
     Indication: ANKYLOSING SPONDYLITIS
     Dosage: UNKNOWN
     Route: 058
     Dates: end: 20080226
  2. CORTANCYL [Suspect]
     Dosage: 20 MG STRENGTH; DOSE AND FREQUENCY UNSPECIFIED
     Route: 048
  3. METHOTREXATE SODIUM [Suspect]
     Dosage: 10 MG TOTAL WEEKLY
     Route: 048
  4. CALCIUM CARBONATE [Concomitant]
     Dosage: UNKNOWN
     Route: 048
  5. FOLIC ACID [Concomitant]
     Dosage: UNKNOWN
     Route: 048
  6. FOSAMAX [Concomitant]
     Dosage: UNKNOWN
     Route: 048

REACTIONS (3)
  - GENERAL PHYSICAL HEALTH DETERIORATION [None]
  - PNEUMOCOCCAL BACTERAEMIA [None]
  - PNEUMONIA PNEUMOCOCCAL [None]
